FAERS Safety Report 17190249 (Version 1)
Quarter: 2019Q4

REPORT INFORMATION
  Report Type: Report from Study
  Country: US (occurrence: US)
  Receive Date: 20191223
  Receipt Date: 20191223
  Transmission Date: 20200122
  Serious: No
  Sender: FDA-Public Use
  Company Number: NVSC2019US076651

PATIENT
  Age: 58 Year
  Sex: Female

DRUGS (1)
  1. BEOVU [Suspect]
     Active Substance: BROLUCIZUMAB-DBLL
     Indication: NEOVASCULAR AGE-RELATED MACULAR DEGENERATION
     Dosage: UNK UNK, UNKNOWN
     Route: 047
     Dates: start: 20191217

REACTIONS (3)
  - Eye pain [Recovering/Resolving]
  - Injection site pain [Recovering/Resolving]
  - Ocular discomfort [Unknown]

NARRATIVE: CASE EVENT DATE: 20191217
